FAERS Safety Report 5192111-0 (Version None)
Quarter: 2006Q4

REPORT INFORMATION
  Report Type: 
  Country: None (occurrence: None)
  Receive Date: 20061221
  Receipt Date: 20061221
  Transmission Date: 20070319
  Serious: Yes (Hospitalization)
  Sender: FDA-Public Use
  Company Number: None

PATIENT
  Age: 86 Year
  Sex: Male
  Weight: 63.5036 kg

DRUGS (8)
  1. RANEXA [Suspect]
     Indication: ANGINA PECTORIS
     Dosage: PO
     Route: 048
  2. PLAVIX [Suspect]
     Indication: CORONARY ARTERY DISEASE
     Dosage: (UNKNOWN -GREATER THAN 3 MO)
  3. FOLGARD [Concomitant]
  4. IMDUR [Concomitant]
  5. ALTACE [Concomitant]
  6. TOPROL X [Concomitant]
  7. LIPITOR [Concomitant]
  8. DIGOXIN [Concomitant]

REACTIONS (9)
  - BLOOD BLISTER [None]
  - ECCHYMOSIS [None]
  - EOSINOPHILIA [None]
  - HAEMATOCRIT DECREASED [None]
  - MOUTH HAEMORRHAGE [None]
  - NONSPECIFIC REACTION [None]
  - PETECHIAE [None]
  - RASH [None]
  - THROMBOCYTOPENIA [None]
